FAERS Safety Report 17768709 (Version 2)
Quarter: 2020Q2

REPORT INFORMATION
  Report Type: Report from Study
  Country: KR (occurrence: KR)
  Receive Date: 20200512
  Receipt Date: 20200629
  Transmission Date: 20200714
  Serious: Yes (Hospitalization)
  Sender: FDA-Public Use
  Company Number: KR-CELLTRION INC.-2020KR022246

PATIENT

DRUGS (9)
  1. ATOZET [Concomitant]
     Active Substance: ATORVASTATIN CALCIUM\EZETIMIBE
     Indication: ATRIAL FIBRILLATION
     Dosage: 10/20MG; 1 TABLET QD
     Route: 048
     Dates: start: 20191111
  2. CHOP [Suspect]
     Active Substance: CYCLOPHOSPHAMIDE\DOXORUBICIN\PREDNISONE\VINCRISTINE
     Indication: DIFFUSE LARGE B-CELL LYMPHOMA
     Dosage: FIRST ADMINISTRATION
     Route: 065
     Dates: start: 20191024
  3. BESZYME [Concomitant]
     Indication: GASTRITIS PROPHYLAXIS
     Dosage: 1 TAB, QD
     Route: 048
     Dates: start: 2019, end: 20191104
  4. TRUXIMA [Suspect]
     Active Substance: RITUXIMAB-ABBS
     Indication: DIFFUSE LARGE B-CELL LYMPHOMA
     Dosage: 615 MG EVERY 3 WEEKS
     Route: 042
     Dates: start: 20191024, end: 20200114
  5. CHOP [Suspect]
     Active Substance: CYCLOPHOSPHAMIDE\DOXORUBICIN\PREDNISONE\VINCRISTINE
     Dosage: 4TH ADMINISTRATION
     Route: 065
     Dates: start: 20200114
  6. ROSUZET [Concomitant]
     Active Substance: EZETIMIBE\ROSUVASTATIN
     Indication: HYPERLIPIDAEMIA
     Dosage: 10/5MG 1 TABLET QD
     Route: 048
     Dates: start: 2019
  7. XARELTO [Concomitant]
     Active Substance: RIVAROXABAN
     Indication: ATRIAL FIBRILLATION
     Dosage: 1 TABLET QD
     Route: 048
     Dates: start: 20191111
  8. RYTMONORM SR [Concomitant]
     Active Substance: PROPAFENONE
     Indication: ATRIAL FIBRILLATION
     Dosage: 1 TABLET, QD
     Route: 048
     Dates: start: 20191111
  9. PANTOLOC [PANTOPRAZOLE] [Concomitant]
     Active Substance: PANTOPRAZOLE SODIUM
     Indication: GASTRITIS PROPHYLAXIS
     Dosage: 1 TABLET QD
     Route: 048
     Dates: start: 20171102

REACTIONS (1)
  - Haemoptysis [Recovered/Resolved]

NARRATIVE: CASE EVENT DATE: 20200126
